FAERS Safety Report 8359337-6 (Version None)
Quarter: 2012Q2

REPORT INFORMATION
  Report Type: 
  Country: None (occurrence: None)
  Receive Date: 20120515
  Receipt Date: 20120510
  Transmission Date: 20120825
  Serious: No
  Sender: FDA-Public Use
  Company Number: US-PFIZER INC-2012114850

PATIENT
  Sex: Male
  Weight: 120.18 kg

DRUGS (9)
  1. HYDROCHLOROTHIAZIDE [Concomitant]
     Dosage: UNK
  2. LIPITOR [Suspect]
     Dosage: 20 MG, 1X/DAY
     Route: 048
     Dates: start: 20120301, end: 20120301
  3. LIPITOR [Suspect]
     Dosage: 40 MG, 1X/DAY
     Route: 048
     Dates: start: 20120301
  4. LIPITOR [Suspect]
     Indication: BLOOD CHOLESTEROL INCREASED
     Dosage: 40 MG, 1X/DAY
     Route: 048
     Dates: start: 20111101, end: 20120201
  5. PLAVIX [Concomitant]
     Dosage: UNK
  6. VITAMIN B1 TAB [Concomitant]
     Dosage: UNK
  7. FOLIC ACID [Concomitant]
     Dosage: UNK
  8. RAMIPRIL [Concomitant]
     Indication: HYPERTENSION
     Dosage: UNK
  9. TOPROL-XL [Concomitant]
     Dosage: UNK

REACTIONS (1)
  - PAIN IN EXTREMITY [None]
